FAERS Safety Report 6435939-9 (Version None)
Quarter: 2009Q4

REPORT INFORMATION
  Report Type: 
  Country: None (occurrence: None)
  Receive Date: 20091111
  Receipt Date: 20091105
  Transmission Date: 20100525
  Serious: Yes (Other)
  Sender: FDA-Public Use
  Company Number: BR-BAYER-200817279LA

PATIENT
  Age: 30 Year
  Sex: Female
  Weight: 51 kg

DRUGS (2)
  1. MIRANOVA [Suspect]
     Indication: ORAL CONTRACEPTION
     Dosage: 1 TAB/DAY 21/28 DAYS
     Route: 048
     Dates: start: 20080813, end: 20090801
  2. ANTIINFLAMATORY DRUG [Concomitant]
     Indication: DRUG USE FOR UNKNOWN INDICATION

REACTIONS (3)
  - ANORECTAL DISORDER [None]
  - CONSTIPATION [None]
  - RECTAL HAEMORRHAGE [None]
